FAERS Safety Report 6640880-2 (Version None)
Quarter: 2010Q1

REPORT INFORMATION
  Report Type: 
  Country: None (occurrence: None)
  Receive Date: 20100318
  Receipt Date: 20100310
  Transmission Date: 20100710
  Serious: Yes (Death, Life-Threatening, Hospitalization)
  Sender: FDA-Public Use
  Company Number: US-AMGEN-KDC399338

PATIENT
  Age: 60 Year
  Sex: Male

DRUGS (1)
  1. ENBREL [Suspect]
     Indication: GRAFT VERSUS HOST DISEASE

REACTIONS (2)
  - ACUTE GRAFT VERSUS HOST DISEASE [None]
  - BRONCHOPULMONARY ASPERGILLOSIS [None]
